FAERS Safety Report 18221355 (Version 1)
Quarter: 2020Q3

REPORT INFORMATION
  Report Type: Spontaneous
  Country: US (occurrence: US)
  Receive Date: 20200901
  Receipt Date: 20200901
  Transmission Date: 20201103
  Serious: Yes (Other)
  Sender: FDA-Public Use
  Company Number: None

PATIENT
  Age: 70 Year
  Sex: Female
  Weight: 69.75 kg

DRUGS (15)
  1. PREGABALIN. [Suspect]
     Active Substance: PREGABALIN
     Indication: ARTHRALGIA
     Dates: start: 20191224, end: 20200229
  2. CELEBREX [Concomitant]
     Active Substance: CELECOXIB
  3. GLUCOSAMINE [Concomitant]
     Active Substance: GLUCOSAMINE
  4. MSM [Concomitant]
     Active Substance: DIMETHYL SULFONE
  5. CALCIUM [Concomitant]
     Active Substance: CALCIUM
  6. HYLAURONIC ACID [Concomitant]
  7. ZINC. [Concomitant]
     Active Substance: ZINC
  8. PREGABALIN. [Suspect]
     Active Substance: PREGABALIN
     Indication: MYALGIA
     Dates: start: 20191224, end: 20200229
  9. FISH OIL [Concomitant]
     Active Substance: FISH OIL
  10. VITAMIN D3 [Concomitant]
     Active Substance: CHOLECALCIFEROL
  11. MAGNESIUM [Concomitant]
     Active Substance: MAGNESIUM
  12. LUTEIN [Concomitant]
     Active Substance: LUTEIN
  13. ASPIRIN. [Concomitant]
     Active Substance: ASPIRIN
  14. CHONDROITIN [Concomitant]
     Active Substance: CHONDROITIN
  15. ACETAMINOPHEN. [Concomitant]
     Active Substance: ACETAMINOPHEN

REACTIONS (5)
  - Mucosal disorder [None]
  - Dehydration [None]
  - Diarrhoea [None]
  - Vision blurred [None]
  - Product substitution issue [None]

NARRATIVE: CASE EVENT DATE: 20191224
